FAERS Safety Report 19928392 (Version 1)
Quarter: 2021Q4

REPORT INFORMATION
  Report Type: Spontaneous
  Country: US (occurrence: US)
  Receive Date: 20211006
  Receipt Date: 20211006
  Transmission Date: 20220303
  Serious: Yes (unspecified)
  Sender: FDA-Public Use
  Company Number: None

PATIENT
  Age: 9 Year
  Sex: Female
  Weight: 45.9 kg

DRUGS (1)
  1. HALOPERIDOL [Suspect]
     Active Substance: HALOPERIDOL
     Indication: Agitation
     Dosage: OTHER FREQUENCY:ONE TIME DOSE/ED;
     Route: 030
     Dates: start: 20210911, end: 20210911

REACTIONS (3)
  - Extrapyramidal disorder [None]
  - Gait disturbance [None]
  - Muscle rigidity [None]

NARRATIVE: CASE EVENT DATE: 20210911
